FAERS Safety Report 12048238 (Version 2)
Quarter: 2016Q1

REPORT INFORMATION
  Report Type: Spontaneous
  Country: PT (occurrence: PT)
  Receive Date: 20160208
  Receipt Date: 20160215
  Transmission Date: 20160526
  Serious: Yes (Hospitalization)
  Sender: FDA-Public Use
  Company Number: PT-ABBVIE-16P-130-1553650-00

PATIENT
  Sex: Male

DRUGS (2)
  1. HUMIRA [Suspect]
     Active Substance: ADALIMUMAB
     Indication: CROHN^S DISEASE
     Route: 065
     Dates: start: 2008, end: 201505
  2. AZATHIOPRINE. [Concomitant]
     Active Substance: AZATHIOPRINE
     Indication: PRODUCT USED FOR UNKNOWN INDICATION
     Dates: start: 2005, end: 201505

REACTIONS (13)
  - Tachypnoea [Unknown]
  - Alanine aminotransferase increased [Unknown]
  - Blood alkaline phosphatase increased [Unknown]
  - Pyrexia [Recovered/Resolved]
  - Aspartate aminotransferase increased [Unknown]
  - Necrotising granulomatous lymphadenitis [Unknown]
  - Cardiac murmur [Unknown]
  - Cholestasis [Unknown]
  - Gamma-glutamyltransferase increased [Unknown]
  - Hypoxia [Recovered/Resolved]
  - Tuberculosis [Unknown]
  - Cough [Unknown]
  - Rales [Unknown]

NARRATIVE: CASE EVENT DATE: 2015
